FAERS Safety Report 5128203-1 (Version None)
Quarter: 2006Q4

REPORT INFORMATION
  Report Type: 
  Country: None (occurrence: None)
  Receive Date: 20061011
  Receipt Date: 20060927
  Transmission Date: 20070319
  Serious: Yes (Death)
  Sender: FDA-Public Use
  Company Number: 3339AC

PATIENT
  Sex: Male

DRUGS (2)
  1. COLGATE [Suspect]
     Indication: DENTAL PLAQUE
     Dosage: ORAL
     Route: 048
  2. COLGATE [Suspect]
     Indication: GINGIVITIS
     Dosage: ORAL
     Route: 048

REACTIONS (1)
  - GASTROINTESTINAL NECROSIS [None]
